FAERS Safety Report 20651461 (Version 4)
Quarter: 2022Q2

REPORT INFORMATION
  Report Type: Spontaneous
  Country: JP (occurrence: JP)
  Receive Date: 20220330
  Receipt Date: 20220613
  Transmission Date: 20220721
  Serious: Yes (Hospitalization)
  Sender: FDA-Public Use
  Company Number: JP-NOVARTISPH-NVSJ2022JP001072

PATIENT
  Age: 74 Year
  Sex: Male

DRUGS (3)
  1. ENTRESTO [Suspect]
     Active Substance: SACUBITRIL\VALSARTAN
     Indication: Cardiac failure chronic
     Dosage: 300 MG
     Route: 048
     Dates: start: 20210820
  2. ENTRESTO [Suspect]
     Active Substance: SACUBITRIL\VALSARTAN
     Dosage: UNK
     Route: 048
     Dates: start: 202112
  3. UBIDECARENONE [Concomitant]
     Active Substance: UBIDECARENONE
     Indication: Product used for unknown indication
     Dosage: UNK
     Route: 065

REACTIONS (5)
  - Brain natriuretic peptide increased [Recovering/Resolving]
  - Therapeutic response decreased [Recovering/Resolving]
  - Oedema peripheral [Recovering/Resolving]
  - Large intestine polyp [Unknown]
  - Occult blood [Unknown]

NARRATIVE: CASE EVENT DATE: 20210801
